FAERS Safety Report 9373088 (Version 3)
Quarter: 2013Q3

REPORT INFORMATION
  Report Type: Spontaneous
  Country: TW (occurrence: TW)
  Receive Date: 20130627
  Receipt Date: 20130731
  Transmission Date: 20140515
  Serious: Yes (Hospitalization, Other)
  Sender: FDA-Public Use
  Company Number: TW-PFIZER INC-2013186567

PATIENT
  Age: 81 Year
  Sex: Male

DRUGS (1)
  1. SUTENT [Suspect]
     Indication: RENAL CELL CARCINOMA
     Dosage: 37.5 MG, 1X/DAY (3 WEEKS ON AND ONE WEEK OFF)
     Route: 048
     Dates: start: 20121122, end: 20130611

REACTIONS (2)
  - Anal abscess [Not Recovered/Not Resolved]
  - Platelet count decreased [Unknown]
